FAERS Safety Report 7074183-1 (Version None)
Quarter: 2010Q4

REPORT INFORMATION
  Report Type: 
  Country: None (occurrence: None)
  Receive Date: 20101029
  Receipt Date: 20101019
  Transmission Date: 20110411
  Serious: Yes (Other)
  Sender: FDA-Public Use
  Company Number: CZ-PFIZER INC-2010132942

PATIENT
  Sex: Female

DRUGS (3)
  1. XALATAN [Suspect]
     Indication: GLAUCOMA
     Dosage: UNK
     Dates: start: 20080101
  2. ALPHAGAN [Suspect]
     Indication: GLAUCOMA
     Dosage: UNK
     Dates: start: 20090101, end: 20100101
  3. AZOPT [Suspect]
     Indication: GLAUCOMA
     Dosage: UNK
     Dates: start: 20100101

REACTIONS (5)
  - DRY MOUTH [None]
  - DRY THROAT [None]
  - EYE PAIN [None]
  - NASAL CONGESTION [None]
  - VISUAL ACUITY REDUCED [None]
